FAERS Safety Report 7990232-8 (Version None)
Quarter: 2011Q4

REPORT INFORMATION
  Report Type: 
  Country: None (occurrence: None)
  Receive Date: 20111219
  Receipt Date: 20111208
  Transmission Date: 20120403
  Serious: Yes (Hospitalization, Other)
  Sender: FDA-Public Use
  Company Number: FR-MILLENNIUM PHARMACEUTICALS, INC.-2011-06331

PATIENT

DRUGS (8)
  1. NICARDIPINE HCL [Concomitant]
     Indication: HYPERTENSION
     Dosage: 20 MG, UNK
     Route: 048
  2. ARANESP [Concomitant]
  3. MELPHALAN HYDROCHLORIDE [Suspect]
     Indication: MULTIPLE MYELOMA
     Dosage: 6 MG/M2, CYCLIC
     Route: 048
     Dates: start: 20110419, end: 20111109
  4. UVEDOSE [Concomitant]
  5. HYPERIUM                           /00939801/ [Concomitant]
     Dosage: UNK
  6. IRON DEXTRAN [Concomitant]
  7. VELCADE [Suspect]
     Indication: MULTIPLE MYELOMA
     Dosage: 1.3 MG/M2, CYCLIC
     Dates: start: 20110419, end: 20111109
  8. PREDNISONE TAB [Suspect]
     Indication: MULTIPLE MYELOMA
     Dosage: 80 MG, UNK
     Route: 048
     Dates: start: 20110419, end: 20111109

REACTIONS (5)
  - LEUKOPENIA [None]
  - HAEMATOMA [None]
  - PYREXIA [None]
  - THROMBOCYTOPENIA [None]
  - APLASIA [None]
